FAERS Safety Report 7231319-7 (Version None)
Quarter: 2011Q1

REPORT INFORMATION
  Report Type: 
  Country: None (occurrence: None)
  Receive Date: 20110118
  Receipt Date: 20110112
  Transmission Date: 20110831
  Serious: Yes (Death, Hospitalization, Other)
  Sender: FDA-Public Use
  Company Number: PHHY2010CH87115

PATIENT
  Age: 64 Year
  Sex: Male

DRUGS (6)
  1. LASIX [Concomitant]
     Dosage: 20 MG, BID
     Dates: start: 20101112
  2. ALDACTONE [Concomitant]
     Dosage: 50 MG, BID
     Dates: start: 20101108
  3. INDERAL [Concomitant]
     Dosage: 80 MG, UNK
  4. INSULIN [Concomitant]
     Dosage: 1 DF, PRN
     Route: 058
     Dates: start: 20100927
  5. SIMCORA [Suspect]
     Dosage: 20 MG, QD
     Route: 048
     Dates: end: 20101112
  6. JANUMET [Suspect]
     Dosage: 1700 MG/100 MG (2 X 850 MG AND 2 X 50 MG)
     Route: 048
     Dates: start: 20101008, end: 20101108

REACTIONS (19)
  - HAEMORRHAGE [None]
  - BLOOD THYROID STIMULATING HORMONE INCREASED [None]
  - BASE EXCESS INCREASED [None]
  - CARDIAC ARREST [None]
  - SHOCK HAEMORRHAGIC [None]
  - BLOOD PHOSPHORUS INCREASED [None]
  - HEPATIC NECROSIS [None]
  - CARDIOMEGALY [None]
  - HAEMODYNAMIC INSTABILITY [None]
  - BLOOD CREATINE PHOSPHOKINASE INCREASED [None]
  - LACTIC ACIDOSIS [None]
  - SCAR [None]
  - INFARCTION [None]
  - MYOGLOBIN BLOOD INCREASED [None]
  - CALCIFICATION OF MUSCLE [None]
  - SEPSIS [None]
  - NEPHROTIC SYNDROME [None]
  - RHABDOMYOLYSIS [None]
  - HYPERKALAEMIA [None]
